FAERS Safety Report 13959983 (Version 1)
Quarter: 2017Q3

REPORT INFORMATION
  Report Type: Spontaneous
  Country: DE (occurrence: DE)
  Receive Date: 20170912
  Receipt Date: 20170912
  Transmission Date: 20171128
  Serious: Yes (Hospitalization, Other)
  Sender: FDA-Public Use
  Company Number: DE-AMGEN-DEUSP2017137510

PATIENT
  Age: 66 Year
  Sex: Female

DRUGS (11)
  1. TRIMETHOPRIM. [Concomitant]
     Active Substance: TRIMETHOPRIM
     Indication: PROPHYLAXIS
     Dosage: 960 MG, QD
     Route: 048
     Dates: start: 20120713
  2. PREGABALIN. [Concomitant]
     Active Substance: PREGABALIN
     Dosage: 200 MG, UNK
     Route: 048
  3. VINCRISTINE [Suspect]
     Active Substance: VINCRISTINE
     Indication: B-CELL LYMPHOMA
     Dosage: 2 MG, QD (AS PER PROTOCOL)
     Route: 042
     Dates: start: 20120716
  4. CYCLOPHOSPHAMIDE. [Suspect]
     Active Substance: CYCLOPHOSPHAMIDE
     Indication: B-CELL LYMPHOMA
     Dosage: 1330 MG, QD (AS PER PROTOCOL)
     Route: 042
     Dates: start: 20120716
  5. DOXORUBICIN HYDROCHLORIDE. [Suspect]
     Active Substance: DOXORUBICIN HYDROCHLORIDE
     Indication: B-CELL LYMPHOMA
     Dosage: 90 MG, QD (AS PER PROTOCOL)
     Route: 042
     Dates: start: 20120716
  6. ZOLEDRONIC ACID [Concomitant]
     Active Substance: ZOLEDRONIC ACID
     Dosage: 4 MG, QD
     Route: 042
     Dates: start: 20120717
  7. PREDNISOLONE. [Suspect]
     Active Substance: PREDNISOLONE
     Indication: B-CELL LYMPHOMA
     Dosage: 6 MG, QD
     Route: 048
     Dates: start: 20120716
  8. ACICLOVIR [Concomitant]
     Active Substance: ACYCLOVIR
     Dosage: 400 MG, TID
     Dates: start: 20120712
  9. PEGFILGRASTIM [Suspect]
     Active Substance: PEGFILGRASTIM
     Indication: B-CELL LYMPHOMA
     Dosage: 6 MG, QD (AS PER PROTOCOL)
     Route: 058
     Dates: start: 20120619
  10. RITUXIMAB. [Suspect]
     Active Substance: RITUXIMAB
     Indication: B-CELL LYMPHOMA
     Dosage: 665 MG, QD (AS PER PROTOCOL)
     Route: 048
     Dates: start: 20120716
  11. OMEPRAZOLE. [Concomitant]
     Active Substance: OMEPRAZOLE
     Dosage: 20 MG, QD
     Route: 048
     Dates: start: 20120709

REACTIONS (2)
  - Febrile neutropenia [Unknown]
  - Lumbar vertebral fracture [Recovered/Resolved]

NARRATIVE: CASE EVENT DATE: 20120719
